FAERS Safety Report 10744498 (Version 1)
Quarter: 2015Q1

REPORT INFORMATION
  Report Type: Spontaneous
  Country: US (occurrence: None)
  Receive Date: 20150126
  Receipt Date: 20150126
  Transmission Date: 20150721
  Serious: No
  Sender: FDA-Public Use
  Company Number: None

PATIENT
  Age: 30 Year
  Sex: Female

DRUGS (1)
  1. METRONIDAZOLE. [Suspect]
     Active Substance: METRONIDAZOLE
     Indication: VAGINITIS BACTERIAL
     Dosage: ONE APPLICATOR FULL 5 NIGHTS, AT BEDTIME, VAGINAL
     Route: 067
     Dates: start: 20150123, end: 20150125

REACTIONS (11)
  - Abdominal pain upper [None]
  - Nausea [None]
  - Chromaturia [None]
  - Feeding disorder [None]
  - Sensory disturbance [None]
  - Flatulence [None]
  - Headache [None]
  - Constipation [None]
  - Fungal infection [None]
  - Pruritus [None]
  - Unevaluable event [None]

NARRATIVE: CASE EVENT DATE: 20150125
